FAERS Safety Report 16811630 (Version 1)
Quarter: 2019Q3

REPORT INFORMATION
  Report Type: Report from Study
  Country: US (occurrence: US)
  Receive Date: 20190916
  Receipt Date: 20190916
  Transmission Date: 20191005
  Serious: Yes (Hospitalization, Other)
  Sender: FDA-Public Use
  Company Number: US-MYLANLABS-2019M1085309

PATIENT
  Age: 22 Year
  Sex: Male

DRUGS (8)
  1. VITAMIN C [Concomitant]
     Active Substance: ASCORBIC ACID
  2. CEFTAZIDIME. [Concomitant]
     Active Substance: CEFTAZIDIME
  3. TRANSDERM                          /00003201/ [Concomitant]
  4. ERYTHROMYCIN. [Concomitant]
     Active Substance: ERYTHROMYCIN
  5. RANITIDINE. [Concomitant]
     Active Substance: RANITIDINE
  6. ALBUTEROL                          /00139501/ [Concomitant]
     Active Substance: ALBUTEROL
  7. ZINC. [Concomitant]
     Active Substance: ZINC
  8. TOBRAMYCIN INHALATION SOLUTION, USP [Suspect]
     Active Substance: TOBRAMYCIN
     Indication: DEPENDENCE ON RESPIRATOR
     Dosage: 80 MILLIGRAM MIX ONE VIAL OF TOBRAMYCIN (80 MG) WITH 3 ML 0.9 PERCENT NACL TWICE DAILY
     Dates: start: 201902

REACTIONS (1)
  - Cardiac arrest [Unknown]

NARRATIVE: CASE EVENT DATE: 20190831
